FAERS Safety Report 24352306 (Version 1)
Quarter: 2024Q3

REPORT INFORMATION
  Report Type: Spontaneous
  Country: US (occurrence: None)
  Receive Date: 20240921
  Receipt Date: 20240921
  Transmission Date: 20241017
  Serious: Yes (Disabling)
  Sender: Public
  Company Number: None

PATIENT
  Age: 42 Year
  Sex: Female
  Weight: 83.7 kg

DRUGS (4)
  1. XEOMIN [Suspect]
     Active Substance: INCOBOTULINUMTOXINA
     Indication: Temporomandibular pain and dysfunction syndrome
     Dosage: 1 ENCOUNTER INTRAMUSCULAR
     Route: 030
     Dates: start: 20240730, end: 20240730
  2. PROPRANOLOL [Concomitant]
     Active Substance: PROPRANOLOL HYDROCHLORIDE
  3. TRINTELLIX [Concomitant]
     Active Substance: VORTIOXETINE HYDROBROMIDE
  4. MAXALT [Concomitant]
     Active Substance: RIZATRIPTAN BENZOATE

REACTIONS (7)
  - Botulism [None]
  - Confusional state [None]
  - Dysphonia [None]
  - Hypoaesthesia [None]
  - Anxiety [None]
  - Depression [None]
  - Night sweats [None]

NARRATIVE: CASE EVENT DATE: 20240730
